FAERS Safety Report 14292897 (Version 1)
Quarter: 2017Q4

REPORT INFORMATION
  Report Type: Spontaneous
  Country: US (occurrence: US)
  Receive Date: 20171215
  Receipt Date: 20171215
  Transmission Date: 20180321
  Serious: No
  Sender: FDA-Public Use
  Company Number: US-WELLSTAT THERAPEUTICS CORPORATION-2037236

PATIENT
  Age: 4 Year
  Sex: Male
  Weight: 20.4 kg

DRUGS (7)
  1. IBUPROFEN. [Concomitant]
     Active Substance: IBUPROFEN
  2. VITAMIN B COMPLEX [Concomitant]
     Active Substance: CYANOCOBALAMIN\DEXPANTHENOL\NIACINAMIDE\PYRIDOXINE HYDROCHLORIDE\RIBOFLAVIN 5^-PHOSPHATE SODIUM\THIAMINE HYDROCHLORIDE\VITAMIN B COMPLEX
  3. TYLENOL [Concomitant]
     Active Substance: ACETAMINOPHEN
  4. XURIDEN [Suspect]
     Active Substance: URIDINE TRIACETATE
     Indication: GENE MUTATION
     Route: 048
     Dates: start: 20170608
  5. KEPPRA [Concomitant]
     Active Substance: LEVETIRACETAM
  6. VITAMIN D [Concomitant]
     Active Substance: CHOLECALCIFEROL
  7. DIAZEPAM. [Concomitant]
     Active Substance: DIAZEPAM

REACTIONS (1)
  - Diarrhoea [Not Recovered/Not Resolved]

NARRATIVE: CASE EVENT DATE: 20170608
